FAERS Safety Report 26176263 (Version 1)
Quarter: 2025Q4

REPORT INFORMATION
  Report Type: Spontaneous
  Country: US (occurrence: None)
  Receive Date: 20251218
  Receipt Date: 20251218
  Transmission Date: 20260118
  Serious: Yes (Hospitalization)
  Sender: FDA-CTU
  Company Number: None

PATIENT
  Age: 72 Year
  Sex: Male
  Weight: 90 kg

DRUGS (1)
  1. DYSPORT [Suspect]
     Active Substance: ABOBOTULINUMTOXINA
     Indication: Neuroma
     Dosage: 300 UNK - UNKNOWN NERUROMA AND MYOFASCIAL FLAP INJECTION
     Route: 050

REACTIONS (6)
  - Bradycardia [None]
  - Hypotension [None]
  - Dysphagia [None]
  - Drooling [None]
  - Asthenia [None]
  - Dyspnoea [None]

NARRATIVE: CASE EVENT DATE: 20251127
